FAERS Safety Report 9322283 (Version 1)
Quarter: 2013Q2

REPORT INFORMATION
  Report Type: Spontaneous
  Country: FR (occurrence: FR)
  Receive Date: 20130531
  Receipt Date: 20130531
  Transmission Date: 20140414
  Serious: Yes (Hospitalization)
  Sender: FDA-Public Use
  Company Number: FR-GLAXOSMITHKLINE-B0895232A

PATIENT
  Age: 12 Year
  Sex: Male

DRUGS (5)
  1. ZINNAT [Suspect]
     Indication: BRONCHITIS
     Dosage: 250MG TWICE PER DAY
     Route: 048
     Dates: start: 20130131, end: 20130201
  2. DEXTROMETHORPHAN [Suspect]
     Indication: BRONCHITIS
     Dosage: 30MG THREE TIMES PER DAY
     Route: 048
     Dates: start: 20130131, end: 20130201
  3. CORTANCYL [Suspect]
     Indication: BRONCHITIS
     Dosage: 15MG PER DAY
     Route: 048
     Dates: start: 20130131, end: 20130201
  4. PIVALONE [Suspect]
     Indication: BRONCHITIS
     Route: 045
     Dates: start: 20130131, end: 20130201
  5. DOLIPRANE [Suspect]
     Indication: BRONCHITIS
     Dosage: 500MG AS REQUIRED
     Route: 048
     Dates: start: 20130131, end: 20130201

REACTIONS (4)
  - Anxiety [Recovered/Resolved]
  - Dizziness [Recovered/Resolved]
  - Myoclonus [Recovered/Resolved]
  - Muscle spasms [Recovered/Resolved]
